FAERS Safety Report 11998471 (Version 1)
Quarter: 2016Q1

REPORT INFORMATION
  Report Type: Spontaneous
  Country: US (occurrence: None)
  Receive Date: 20160203
  Receipt Date: 20160203
  Transmission Date: 20160526
  Serious: Yes (Disabling, Other)
  Sender: FDA-Public Use
  Company Number: None

PATIENT
  Sex: Male
  Weight: 77.11 kg

DRUGS (10)
  1. METHYLPREDNISOLONE. [Suspect]
     Active Substance: METHYLPREDNISOLONE
     Indication: DYSPHONIA
     Dosage: 4 MG TAKE AS DIRECTED AS DIRECTED ON PACKAGE BY MOUTH
     Route: 048
     Dates: start: 20151004, end: 20151008
  2. METHYLPREDNISOLONE. [Suspect]
     Active Substance: METHYLPREDNISOLONE
     Indication: NASAL CONGESTION
     Dosage: 4 MG TAKE AS DIRECTED AS DIRECTED ON PACKAGE BY MOUTH
     Route: 048
     Dates: start: 20151004, end: 20151008
  3. NATURAL FIBER THERAPY [Concomitant]
  4. PROSVENT [Concomitant]
  5. OXYGEN MACHINE [Concomitant]
  6. OSTEO BI-FLEX [Concomitant]
     Active Substance: CHONDROITIN SULFATE A\GLUCOSAMINE
  7. LINZESS [Concomitant]
     Active Substance: LINACLOTIDE
  8. AMLODIPINE BESYLATE. [Concomitant]
     Active Substance: AMLODIPINE BESYLATE
  9. SIMVASTATIN. [Concomitant]
     Active Substance: SIMVASTATIN
  10. FLUTICASONE [Concomitant]
     Active Substance: FLUTICASONE\FLUTICASONE PROPIONATE

REACTIONS (1)
  - Drug ineffective [None]
